FAERS Safety Report 5376733-X (Version None)
Quarter: 2007Q2

REPORT INFORMATION
  Report Type: 
  Country: None (occurrence: None)
  Receive Date: 20070629
  Receipt Date: 20070629
  Transmission Date: 20071010
  Serious: Yes (Hospitalization)
  Sender: FDA-Public Use
  Company Number: None

PATIENT
  Age: 46 Year
  Sex: Female
  Weight: 74.8435 kg

DRUGS (1)
  1. ZELCOR [Suspect]
     Indication: GASTRIC DISORDER
     Dosage: 1 ONCE A DAY  OFF + ON OCCASIONAL ABOUT 1 1/2

REACTIONS (1)
  - CHEST PAIN [None]
